FAERS Safety Report 12144081 (Version 2)
Quarter: 2016Q1

REPORT INFORMATION
  Report Type: Report from Study
  Country: US (occurrence: US)
  Receive Date: 20160304
  Receipt Date: 20160324
  Transmission Date: 20160526
  Serious: Yes (Other)
  Sender: FDA-Public Use
  Company Number: PHEH2016US004171

PATIENT
  Sex: Male

DRUGS (1)
  1. ENTRESTO [Suspect]
     Active Substance: SACUBITRIL\VALSARTAN
     Indication: CARDIAC FAILURE CONGESTIVE
     Dosage: 50 MG(24/26), BID
     Route: 048
     Dates: start: 20160211, end: 20160215

REACTIONS (5)
  - Hypotension [Recovered/Resolved]
  - Somnolence [Recovered/Resolved]
  - Syncope [Unknown]
  - Fatigue [Recovered/Resolved]
  - Hypertension [Unknown]
